FAERS Safety Report 10083303 (Version 2)
Quarter: 2014Q2

REPORT INFORMATION
  Report Type: Spontaneous
  Country: NO (occurrence: NO)
  Receive Date: 20140417
  Receipt Date: 20140422
  Transmission Date: 20141212
  Serious: Yes (Death)
  Sender: FDA-Public Use
  Company Number: NO-ACCORD-023084

PATIENT
  Age: 62 Year
  Sex: Female

DRUGS (2)
  1. METHOTREXATE [Suspect]
     Indication: RHEUMATOID ARTHRITIS
     Route: 065
     Dates: start: 2001
  2. REMICADE [Suspect]
     Indication: RHEUMATOID ARTHRITIS
     Dosage: DURATION OF DRUG ADMINISTRATION WAS 10 YEARS.
     Route: 042
     Dates: start: 20040308

REACTIONS (3)
  - Renal failure [Fatal]
  - B-cell lymphoma [Fatal]
  - Off label use [Unknown]
